FAERS Safety Report 25832450 (Version 1)
Quarter: 2025Q3

REPORT INFORMATION
  Report Type: Spontaneous
  Country: US (occurrence: None)
  Receive Date: 20250921
  Receipt Date: 20250921
  Transmission Date: 20251020
  Serious: Yes (Death)
  Sender: FDA-CTU
  Company Number: None

PATIENT
  Age: 67 Year
  Sex: Female

DRUGS (2)
  1. ENTECAVIR [Suspect]
     Active Substance: ENTECAVIR
     Indication: Blood test abnormal
     Dosage: FREQUENCY : DAILY;?
     Route: 048
     Dates: start: 20230301
  2. ENTECAVIR [Suspect]
     Active Substance: ENTECAVIR
     Indication: Immune system disorder

REACTIONS (1)
  - Lymphoma [None]

NARRATIVE: CASE EVENT DATE: 20250724
